FAERS Safety Report 7462957-4 (Version None)
Quarter: 2011Q2

REPORT INFORMATION
  Report Type: 
  Country: None (occurrence: None)
  Receive Date: 20110506
  Receipt Date: 20110419
  Transmission Date: 20111010
  Serious: Yes (Other)
  Sender: FDA-Public Use
  Company Number: PHHY2011BR33170

PATIENT
  Age: 80 Year
  Sex: Female

DRUGS (4)
  1. EXELON [Concomitant]
     Dosage: 9 MG, UNK
     Route: 062
  2. OMEPRAZOLE [Suspect]
     Dosage: UNK UKN, UNK
     Route: 048
  3. EXELON [Concomitant]
     Dosage: 18 MG, UNK
     Route: 062
  4. SERTRALINE [Concomitant]
     Dosage: UNK UKN, UNK

REACTIONS (6)
  - AGITATION [None]
  - CONCOMITANT DISEASE PROGRESSION [None]
  - GAIT DISTURBANCE [None]
  - DISORIENTATION [None]
  - INSOMNIA [None]
  - FEELING ABNORMAL [None]
